FAERS Safety Report 5227396-5 (Version None)
Quarter: 2007Q1

REPORT INFORMATION
  Report Type: 
  Country: None (occurrence: None)
  Receive Date: 20070202
  Receipt Date: 20070125
  Transmission Date: 20070707
  Serious: Yes (Disabling)
  Sender: FDA-Public Use
  Company Number: FR-ELI_LILLY_AND_COMPANY-FR200701004898

PATIENT
  Age: 26 Year
  Sex: Male
  Weight: 56 kg

DRUGS (4)
  1. HUMALOG [Suspect]
     Indication: DIABETIC EYE DISEASE
     Dosage: 6 D/F, DAILY (1/D)
     Route: 058
     Dates: start: 20051115
  2. AVONEX [Concomitant]
     Indication: MULTIPLE SCLEROSIS
     Dosage: 30 UNK, WEEKLY (1/W)
     Route: 030
     Dates: start: 20050915, end: 20061015
  3. LEVEMIR [Concomitant]
     Indication: DIABETIC EYE DISEASE
     Dosage: UNK, DAILY (1/D)
     Route: 058
     Dates: start: 20051115
  4. COPAXONE [Concomitant]
     Indication: MULTIPLE SCLEROSIS
     Dosage: UNK, UNK
     Route: 058
     Dates: start: 20050101

REACTIONS (2)
  - DIABETES MELLITUS INADEQUATE CONTROL [None]
  - DIABETIC RETINOPATHY [None]
